FAERS Safety Report 6463670-2 (Version None)
Quarter: 2009Q4

REPORT INFORMATION
  Report Type: 
  Country: None (occurrence: None)
  Receive Date: 20091123
  Receipt Date: 20091109
  Transmission Date: 20100525
  Serious: Yes (Other)
  Sender: FDA-Public Use
  Company Number: 1-20693618

PATIENT
  Age: 73 Year

DRUGS (1)
  1. CLINDAMYCIN [Suspect]
     Dosage: 300 MG 3 TIMES DAILY, ORAL
     Route: 048

REACTIONS (2)
  - DRUG HYPERSENSITIVITY [None]
  - VASCULITIS NECROTISING [None]
